FAERS Safety Report 14746012 (Version 1)
Quarter: 2018Q2

REPORT INFORMATION
  Report Type: Spontaneous
  Country: US (occurrence: US)
  Receive Date: 20180411
  Receipt Date: 20180411
  Transmission Date: 20180711
  Serious: Yes (Other)
  Sender: FDA-Public Use
  Company Number: US-NOVOPROD-594348

PATIENT
  Age: 37 Year
  Sex: Male
  Weight: 96.15 kg

DRUGS (1)
  1. TRESIBA FLEXTOUCH U200 [Suspect]
     Active Substance: INSULIN DEGLUDEC
     Indication: TYPE 1 DIABETES MELLITUS
     Dosage: 40 U, QD, EVERY MORNING
     Route: 058
     Dates: end: 2018

REACTIONS (1)
  - Testis cancer [Recovering/Resolving]

NARRATIVE: CASE EVENT DATE: 20180226
